FAERS Safety Report 14236000 (Version 1)
Quarter: 2017Q4

REPORT INFORMATION
  Report Type: Spontaneous
  Country: US (occurrence: US)
  Receive Date: 20171129
  Receipt Date: 20171129
  Transmission Date: 20180321
  Serious: Yes (Hospitalization)
  Sender: FDA-Public Use
  Company Number: US-FRESENIUS KABI-FK201710216

PATIENT
  Age: 50 Year
  Sex: Female

DRUGS (1)
  1. HEPARIN (MANUFACTURER UNKNOWN) [Suspect]
     Active Substance: HEPARIN SODIUM
     Indication: RADIATION NECROSIS
     Route: 058

REACTIONS (5)
  - Cerebral haemorrhage [Recovered/Resolved]
  - Intracranial pressure increased [Recovered/Resolved]
  - Cerebral venous thrombosis [Recovered/Resolved]
  - Product use in unapproved indication [Unknown]
  - Heparin-induced thrombocytopenia [Recovered/Resolved]
